FAERS Safety Report 16536375 (Version 3)
Quarter: 2019Q3

REPORT INFORMATION
  Report Type: Report from Study
  Country: None (occurrence: CO)
  Receive Date: 20190706
  Receipt Date: 20190722
  Transmission Date: 20191004
  Serious: Yes (Death, Hospitalization)
  Sender: FDA-Public Use
  Company Number: CO-ABBVIE-19K-036-2844262-00

PATIENT
  Age: 77 Year
  Sex: Male
  Weight: 55 kg

DRUGS (1)
  1. HUMIRA [Suspect]
     Active Substance: ADALIMUMAB
     Indication: CROHN^S DISEASE
     Route: 058
     Dates: start: 20180810, end: 20190708

REACTIONS (10)
  - Ascites [Recovering/Resolving]
  - Dehydration [Recovering/Resolving]
  - Cardiac disorder [Fatal]
  - Renal disorder [Fatal]
  - Pleural effusion [Recovering/Resolving]
  - Diarrhoea [Fatal]
  - Vomiting [Recovering/Resolving]
  - Vomiting [Fatal]
  - Crohn^s disease [Fatal]
  - Atrial fibrillation [Recovering/Resolving]

NARRATIVE: CASE EVENT DATE: 20190622
